FAERS Safety Report 8814668 (Version 2)
Quarter: 2013Q1

REPORT INFORMATION
  Report Type: Spontaneous
  Country: JP (occurrence: None)
  Receive Date: 20120926
  Receipt Date: 20121005
  Transmission Date: 20140127
  Serious: Yes (Hospitalization)
  Sender: FDA-Public Use
  Company Number: JP-2012-16308

PATIENT
  Age: 71 Year
  Sex: Male
  Weight: 67 kg

DRUGS (11)
  1. OPC-41061 [Suspect]
     Indication: CARDIAC FAILURE
     Route: 048
     Dates: start: 20120712, end: 20120712
  2. MAINTATE (BISOPROLOL FUMARATE) [Concomitant]
  3. PERINDOPRIL (PERINDOPRIL ERBUMINE) [Concomitant]
  4. AMIODARONE HYDROCHLORIDE (AMIODARONE HYDROCHLORIDE) [Concomitant]
  5. WARFARIN (WARFARIN SODIUM) [Concomitant]
  6. ROZEREM (RAMELTEON) [Concomitant]
  7. SLOW K (POTASSIUM CHLORIDE) [Concomitant]
  8. DIART (AZOSEMIDE) [Concomitant]
  9. MAGMITT (MAGNESIUM OXIDE) [Concomitant]
  10. GASMOTIN (MOSAPRIDE CITRATE) [Concomitant]
  11. SELBEX (TEPRENONE) [Concomitant]

REACTIONS (9)
  - Fall [None]
  - Injury [None]
  - Depressed level of consciousness [None]
  - Cerebral infarction [None]
  - Acute coronary syndrome [None]
  - Contusion [None]
  - Blood sodium increased [None]
  - Malaise [None]
  - Musculoskeletal stiffness [None]
